FAERS Safety Report 24227307 (Version 1)
Quarter: 2024Q3

REPORT INFORMATION
  Report Type: Report from Study
  Country: US (occurrence: None)
  Receive Date: 20240820
  Receipt Date: 20240820
  Transmission Date: 20241017
  Serious: Yes (Hospitalization, Other)
  Sender: ASTRAZENECA
  Company Number: 2022A364792

PATIENT
  Sex: Male

DRUGS (1)
  1. CALQUENCE [Suspect]
     Active Substance: ACALABRUTINIB
     Indication: Chronic lymphocytic leukaemia
     Route: 048

REACTIONS (7)
  - Gastrointestinal disorder [Unknown]
  - Single functional kidney [Unknown]
  - White blood cell count decreased [Unknown]
  - Nausea [Unknown]
  - Liver disorder [Unknown]
  - Circadian rhythm sleep disorder [Unknown]
  - Lung disorder [Unknown]
